FAERS Safety Report 10182710 (Version 1)
Quarter: 2014Q2

REPORT INFORMATION
  Report Type: Spontaneous
  Country: US (occurrence: None)
  Receive Date: 20140516
  Receipt Date: 20140516
  Transmission Date: 20141212
  Serious: Yes (Hospitalization)
  Sender: FDA-Public Use
  Company Number: UTC-046429

PATIENT
  Age: 69 Year
  Sex: Female
  Weight: 73.02 kg

DRUGS (2)
  1. REMODULIN [Suspect]
     Indication: PULMONARY ARTERIAL HYPERTENSION
     Dosage: 46.08 UG/KG (0.032 UG/KG, 1 IN 1 MIN), INTRAVENOUS DRIP
     Route: 041
     Dates: start: 20130312
  2. REVATIO (SILDENAFIL CITRATE) [Concomitant]

REACTIONS (5)
  - Fluid retention [None]
  - Ascites [None]
  - Anaemia [None]
  - Atrial fibrillation [None]
  - Disease progression [None]
